FAERS Safety Report 25721500 (Version 1)
Quarter: 2025Q3

REPORT INFORMATION
  Report Type: Report from Study
  Country: CA (occurrence: CA)
  Receive Date: 20250825
  Receipt Date: 20250825
  Transmission Date: 20251020
  Serious: Yes (Hospitalization, Other)
  Sender: ASTELLAS
  Company Number: CA-ASTELLAS-2024-AER-018145

PATIENT
  Age: 77 Year
  Sex: Male

DRUGS (12)
  1. ENZALUTAMIDE [Suspect]
     Active Substance: ENZALUTAMIDE
     Indication: Product used for unknown indication
     Route: 065
     Dates: end: 20240708
  2. TRELSTAR [Suspect]
     Active Substance: TRIPTORELIN PAMOATE
     Indication: Prostate cancer
     Dosage: POWDER FOR SUSPENSION, SUSTAINED RELEASE
     Route: 030
     Dates: start: 20240606, end: 20240606
  3. TRELSTAR [Suspect]
     Active Substance: TRIPTORELIN PAMOATE
     Dosage: POWDER FOR SUSPENSION, SUSTAINED RELEASE
     Route: 030
     Dates: start: 20240711, end: 20240711
  4. TRELSTAR [Suspect]
     Active Substance: TRIPTORELIN PAMOATE
     Dosage: POWDER FOR SUSPENSION, SUSTAINED RELEASE
     Route: 030
     Dates: start: 20240808, end: 20240808
  5. TRELSTAR [Suspect]
     Active Substance: TRIPTORELIN PAMOATE
     Dosage: POWDER FOR SUSPENSION, SUSTAINED RELEASE
     Route: 030
     Dates: start: 20240502, end: 20240502
  6. TRELSTAR [Suspect]
     Active Substance: TRIPTORELIN PAMOATE
     Dosage: POWDER FOR SUSPENSION, SUSTAINED RELEASE
     Route: 030
     Dates: start: 20240904, end: 20240904
  7. TRELSTAR [Suspect]
     Active Substance: TRIPTORELIN PAMOATE
     Dosage: POWDER FOR SUSPENSION, SUSTAINED RELEASE
     Route: 030
     Dates: start: 20241017, end: 20241017
  8. TRELSTAR [Suspect]
     Active Substance: TRIPTORELIN PAMOATE
     Dosage: POWDER FOR SUSPENSION, SUSTAINED RELEASE
     Route: 030
     Dates: start: 20240404, end: 20240404
  9. TRELSTAR [Suspect]
     Active Substance: TRIPTORELIN PAMOATE
     Dosage: POWDER FOR SUSPENSION, SUSTAINED RELEASE
     Route: 030
  10. TRELSTAR [Suspect]
     Active Substance: TRIPTORELIN PAMOATE
     Dosage: POWDER FOR SUSPENSION, SUSTAINED RELEASE
     Route: 030
  11. TRELSTAR [Suspect]
     Active Substance: TRIPTORELIN PAMOATE
     Dosage: POWDER FOR SUSPENSION, SUSTAINED RELEASE
     Route: 030
  12. TRELSTAR [Suspect]
     Active Substance: TRIPTORELIN PAMOATE
     Dosage: POWDER FOR SUSPENSION, SUSTAINED RELEASE
     Route: 030

REACTIONS (15)
  - Hepatic enzyme increased [Unknown]
  - Cancer pain [Unknown]
  - Balance disorder [Unknown]
  - Cerebrovascular accident [Unknown]
  - Confusional state [Unknown]
  - Gait disturbance [Unknown]
  - Memory impairment [Unknown]
  - Malignant neoplasm progression [Unknown]
  - Peripheral swelling [Unknown]
  - Apathy [Not Recovered/Not Resolved]
  - Depressed mood [Not Recovered/Not Resolved]
  - Disturbance in attention [Not Recovered/Not Resolved]
  - Fatigue [Not Recovered/Not Resolved]
  - Asthenia [Unknown]
  - Decreased appetite [Unknown]

NARRATIVE: CASE EVENT DATE: 20240502
